FAERS Safety Report 17302562 (Version 1)
Quarter: 2020Q1

REPORT INFORMATION
  Report Type: Report from Study
  Country: US (occurrence: US)
  Receive Date: 20200122
  Receipt Date: 20200122
  Transmission Date: 20200409
  Serious: Yes (Hospitalization)
  Sender: FDA-Public Use
  Company Number: US-PFIZER INC-2017197340

PATIENT
  Age: 62 Year
  Sex: Female

DRUGS (3)
  1. IBRANCE [Suspect]
     Active Substance: PALBOCICLIB
     Dosage: 100 MG, ONCE DAILY 21 DAYS ON/7 DAYS OFF]
     Route: 048
     Dates: start: 201707
  2. IBRANCE [Suspect]
     Active Substance: PALBOCICLIB
     Indication: BREAST CANCER METASTATIC
     Dosage: 125 MG, 1X/DAY, 21 DAYS ON/7 DAYS OFF
     Route: 048
     Dates: start: 20170428, end: 20170511
  3. LETROZOLE. [Concomitant]
     Active Substance: LETROZOLE
     Dosage: UNK

REACTIONS (6)
  - Fatigue [Unknown]
  - Hot flush [Not Recovered/Not Resolved]
  - Epistaxis [Unknown]
  - Diarrhoea [Not Recovered/Not Resolved]
  - Wound infection [Unknown]
  - Dehydration [Unknown]

NARRATIVE: CASE EVENT DATE: 20170428
